FAERS Safety Report 4501204-X (Version None)
Quarter: 2004Q3

REPORT INFORMATION
  Report Type: 
  Country: None (occurrence: None)
  Receive Date: 20040927
  Receipt Date: 20040817
  Transmission Date: 20050211
  Serious: No
  Sender: FDA-Public Use
  Company Number: USA040875515

PATIENT
  Age: 8 Year
  Sex: Male
  Weight: 35 kg

DRUGS (2)
  1. STRATTERA [Suspect]
     Indication: ATTENTION DEFICIT/HYPERACTIVITY DISORDER
     Dosage: 18 MG/1 DAY
     Dates: start: 20040803
  2. AH-CHEW [Concomitant]

REACTIONS (10)
  - ABNORMAL BEHAVIOUR [None]
  - APATHY [None]
  - DEPRESSION [None]
  - DRUG INEFFECTIVE [None]
  - EMOTIONAL DISTRESS [None]
  - FATIGUE [None]
  - FEELING ABNORMAL [None]
  - INSOMNIA [None]
  - SLEEP DISORDER [None]
  - SOMNOLENCE [None]
